FAERS Safety Report 14618731 (Version 1)
Quarter: 2018Q1

REPORT INFORMATION
  Report Type: Spontaneous
  Country: CA (occurrence: CA)
  Receive Date: 20180309
  Receipt Date: 20180309
  Transmission Date: 20180509
  Serious: Yes (Hospitalization, Other)
  Sender: FDA-Public Use
  Company Number: CA-JAZZ-2018-CA-004072

PATIENT
  Sex: Male

DRUGS (12)
  1. XYREM [Suspect]
     Active Substance: SODIUM OXYBATE
     Dosage: 3 G, BID
     Route: 048
     Dates: start: 200805, end: 2008
  2. XYREM [Suspect]
     Active Substance: SODIUM OXYBATE
     Dosage: 3 G, BID
     Route: 048
     Dates: start: 201503, end: 201503
  3. XYREM [Suspect]
     Active Substance: SODIUM OXYBATE
     Dosage: 3.75 G, BID
     Route: 048
     Dates: start: 2014, end: 2014
  4. XYREM [Suspect]
     Active Substance: SODIUM OXYBATE
     Indication: CATAPLEXY
     Dosage: 2.25 G, BID
     Route: 048
     Dates: start: 20080528, end: 200805
  5. XYREM [Suspect]
     Active Substance: SODIUM OXYBATE
     Dosage: 6.75 G
     Route: 048
     Dates: start: 2011, end: 2011
  6. XYREM [Suspect]
     Active Substance: SODIUM OXYBATE
     Dosage: 3.75 G, BID
     Route: 048
     Dates: start: 2008, end: 2011
  7. XYREM [Suspect]
     Active Substance: SODIUM OXYBATE
     Dosage: 3.75 G
     Route: 048
     Dates: start: 2014, end: 2015
  8. XYREM [Suspect]
     Active Substance: SODIUM OXYBATE
     Dosage: 3.75 G, BID
     Route: 048
     Dates: start: 20150329, end: 2015
  9. XYREM [Suspect]
     Active Substance: SODIUM OXYBATE
     Dosage: 6.5 G
     Route: 048
     Dates: start: 2011, end: 2011
  10. XYREM [Suspect]
     Active Substance: SODIUM OXYBATE
     Dosage: 6.5 G
     Route: 048
     Dates: start: 2015, end: 2015
  11. XYREM [Suspect]
     Active Substance: SODIUM OXYBATE
     Dosage: 3 G, BID
     Route: 048
     Dates: start: 2015
  12. XYREM [Suspect]
     Active Substance: SODIUM OXYBATE
     Dosage: 3.75 G, BID
     Route: 048
     Dates: start: 20150826, end: 2015

REACTIONS (4)
  - Head injury [Unknown]
  - Fall [Recovered/Resolved]
  - Narcolepsy [Unknown]
  - Wound infection [Unknown]
